FAERS Safety Report 6558647-2 (Version None)
Quarter: 2010Q1

REPORT INFORMATION
  Report Type: 
  Country: None (occurrence: None)
  Receive Date: 20100129
  Receipt Date: 20100121
  Transmission Date: 20100710
  Serious: Yes (Other)
  Sender: FDA-Public Use
  Company Number: US-BAYER-201010939BCC

PATIENT
  Age: 79 Year
  Sex: Male
  Weight: 84 kg

DRUGS (7)
  1. ALEVE (CAPLET) [Suspect]
     Indication: BACK PAIN
     Dosage: 4 TO 5 CAPLETS DAILY
     Route: 048
  2. FISH OIL [Concomitant]
     Route: 065
  3. OSCAL [Concomitant]
     Route: 065
  4. MULTI-VITAMIN [Concomitant]
     Route: 065
  5. CYMBALTA [Concomitant]
     Route: 065
  6. VITAMIN B6 [Concomitant]
     Route: 065
  7. FOLIC ACID [Concomitant]
     Route: 065

REACTIONS (1)
  - DEAFNESS [None]
